FAERS Safety Report 14268049 (Version 1)
Quarter: 2017Q4

REPORT INFORMATION
  Report Type: Spontaneous
  Country: US (occurrence: US)
  Receive Date: 20171211
  Receipt Date: 20171211
  Transmission Date: 20180321
  Serious: No
  Sender: FDA-Public Use
  Company Number: US-PFIZER INC-2017526926

PATIENT
  Age: 62 Year
  Sex: Female

DRUGS (1)
  1. MEDROL [Suspect]
     Active Substance: METHYLPREDNISOLONE
     Indication: INFLAMMATION
     Dates: start: 20171201, end: 20171203

REACTIONS (5)
  - Product quality issue [Unknown]
  - Gastrooesophageal reflux disease [Recovered/Resolved]
  - Abdominal discomfort [Unknown]
  - Chest pain [Unknown]
  - Poor quality drug administered [Unknown]

NARRATIVE: CASE EVENT DATE: 20171201
